FAERS Safety Report 7552788-9 (Version None)
Quarter: 2011Q2

REPORT INFORMATION
  Report Type: 
  Country: None (occurrence: None)
  Receive Date: 20110616
  Receipt Date: 20110607
  Transmission Date: 20111010
  Serious: Yes (Life-Threatening, Hospitalization, Congenital Anomaly)
  Sender: FDA-Public Use
  Company Number: AU-JNJFOC-20110602838

PATIENT
  Sex: Female
  Weight: 2.9 kg

DRUGS (4)
  1. ALL OTHER THERAPEUTIC PRODUCTS [Suspect]
     Indication: DRUG EXPOSURE DURING PREGNANCY
     Route: 064
  2. RISPERDAL [Suspect]
     Indication: DRUG EXPOSURE DURING PREGNANCY
     Dosage: .5-1 MG PER DAY
     Route: 064
  3. ELEVIT [Suspect]
     Indication: DRUG EXPOSURE DURING PREGNANCY
     Route: 064
  4. FISH OIL [Suspect]
     Indication: DRUG EXPOSURE DURING PREGNANCY
     Route: 064

REACTIONS (7)
  - VIITH NERVE PARALYSIS [None]
  - RESPIRATORY DISTRESS [None]
  - MATERNAL DRUGS AFFECTING FOETUS [None]
  - FEEDING DISORDER [None]
  - CONGENITAL NEUROLOGICAL DISORDER [None]
  - DEAFNESS [None]
  - FOETAL DISTRESS SYNDROME [None]
